FAERS Safety Report 6251042-5 (Version None)
Quarter: 2009Q2

REPORT INFORMATION
  Report Type: 
  Country: None (occurrence: None)
  Receive Date: 20090626
  Receipt Date: 20090618
  Transmission Date: 20091009
  Serious: Yes (Hospitalization)
  Sender: FDA-Public Use
  Company Number: 2009SP013539

PATIENT
  Age: 73 Year
  Sex: Male

DRUGS (2)
  1. PEG-INTRON [Suspect]
     Indication: HEPATITIS C
     Dosage: 100 MCG
     Dates: start: 20090530
  2. REBETOL [Suspect]
     Dosage: 1000 MG

REACTIONS (3)
  - DISCOMFORT [None]
  - ELECTROLYTE IMBALANCE [None]
  - GENERALISED OEDEMA [None]
